FAERS Safety Report 6156045-7 (Version None)
Quarter: 2009Q2

REPORT INFORMATION
  Report Type: 
  Country: None (occurrence: None)
  Receive Date: 20090413
  Receipt Date: 20090413
  Transmission Date: 20091009
  Serious: Yes (Other)
  Sender: FDA-Public Use
  Company Number: None

PATIENT
  Age: 43 Year
  Sex: Female
  Weight: 100.6985 kg

DRUGS (2)
  1. SINGULAIR [Suspect]
     Indication: ASTHMA
     Dosage: 10MG 1X DAY PO 7-8 YEARS
     Route: 048
  2. SINGULAIR [Suspect]
     Indication: HYPERSENSITIVITY
     Dosage: 10MG 1X DAY PO 7-8 YEARS
     Route: 048

REACTIONS (7)
  - BLOOD CHOLESTEROL INCREASED [None]
  - DEPRESSION [None]
  - EAR PAIN [None]
  - INSOMNIA [None]
  - NIGHTMARE [None]
  - PAIN [None]
  - SOMNAMBULISM [None]
